FAERS Safety Report 21298628 (Version 1)
Quarter: 2022Q3

REPORT INFORMATION
  Report Type: Spontaneous
  Country: US (occurrence: None)
  Receive Date: 20220904
  Receipt Date: 20220904
  Transmission Date: 20221027
  Serious: Yes (Other)
  Sender: FDA-Public Use
  Company Number: None

PATIENT
  Age: 74 Year
  Sex: Male
  Weight: 120.2 kg

DRUGS (2)
  1. MEKTOVI [Suspect]
     Active Substance: BINIMETINIB
     Dosage: FREQUENCY : TWICE A DAY;?
     Route: 048
     Dates: start: 202112, end: 202208
  2. BRAFTOVI [Suspect]
     Active Substance: ENCORAFENIB
     Dosage: FREQUENCY : DAILY;?
     Route: 048
     Dates: start: 202112, end: 202208

REACTIONS (1)
  - Hospice care [None]
